FAERS Safety Report 9688721 (Version 1)
Quarter: 2013Q4

REPORT INFORMATION
  Report Type: Spontaneous
  Country: DK (occurrence: DE)
  Receive Date: 20131114
  Receipt Date: 20131114
  Transmission Date: 20140711
  Serious: Yes (Hospitalization, Other)
  Sender: FDA-Public Use
  Company Number: DE-FRI-1000051008

PATIENT
  Age: 1 Day
  Sex: Male
  Weight: 3.4 kg

DRUGS (7)
  1. CITALOPRAM [Suspect]
     Indication: DEPRESSION
     Dosage: 20 MG
     Route: 064
     Dates: start: 20120306
  2. CITALOPRAM [Suspect]
     Dosage: 20 MG
     Route: 064
     Dates: end: 20121129
  3. OXYTOCIN [Suspect]
     Indication: LABOUR INDUCTION
     Route: 064
     Dates: start: 20121129, end: 20121129
  4. MEPTID [Suspect]
     Indication: OBSTETRICAL PROCEDURE
     Route: 064
     Dates: start: 20121129, end: 20121129
  5. CENTRUM [Concomitant]
     Indication: PROPHYLAXIS OF NEURAL TUBE DEFECT
     Dosage: 0.2 MG
     Route: 064
     Dates: end: 20121129
  6. PENICILLIN [Concomitant]
     Indication: STREPTOCOCCUS TEST POSITIVE
     Route: 064
     Dates: start: 20121129, end: 20121129
  7. BUSCOPAN [Concomitant]
     Indication: OBSTETRICAL PROCEDURE
     Route: 064
     Dates: start: 20121129, end: 20121129

REACTIONS (6)
  - Neonatal asphyxia [Recovered/Resolved]
  - Bradycardia neonatal [Recovered/Resolved]
  - Neonatal respiratory distress syndrome [Recovered/Resolved]
  - Rhythm idioventricular [Recovered/Resolved]
  - Neonatal hypotension [Recovered/Resolved]
  - Foetal exposure during pregnancy [Recovered/Resolved]
